APPROVED DRUG PRODUCT: JUNIOR STRENGTH IBUPROFEN
Active Ingredient: IBUPROFEN
Strength: 100MG
Dosage Form/Route: TABLET;ORAL
Application: A075367 | Product #001
Applicant: L PERRIGO CO
Approved: Apr 22, 1999 | RLD: No | RS: No | Type: DISCN